FAERS Safety Report 4361245-2 (Version None)
Quarter: 2004Q2

REPORT INFORMATION
  Report Type: 
  Country: None (occurrence: None)
  Receive Date: 20040517
  Receipt Date: 20040505
  Transmission Date: 20050107
  Serious: Yes (Hospitalization)
  Sender: FDA-Public Use
  Company Number: 04P-056-0259788-00

PATIENT
  Age: 64 Year
  Sex: Female

DRUGS (3)
  1. DEPAKOTE [Suspect]
     Indication: BIPOLAR DISORDER
     Dosage: 250 MG, 3 IN 1 D, PER ORAL
     Route: 048
     Dates: start: 20010101, end: 20040419
  2. BROMAZEPAM [Concomitant]
  3. MIRTAZAPINE [Concomitant]

REACTIONS (3)
  - MAJOR DEPRESSION [None]
  - PARKINSON'S DISEASE [None]
  - REPETITIVE SPEECH [None]
